FAERS Safety Report 24551630 (Version 2)
Quarter: 2025Q1

REPORT INFORMATION
  Report Type: Report from Study
  Country: CA (occurrence: CA)
  Receive Date: 20241026
  Receipt Date: 20250209
  Transmission Date: 20250409
  Serious: Yes (Hospitalization, Other)
  Sender: AUROBINDO
  Company Number: CA-AUROBINDO-AUR-APL-2023-074050

PATIENT
  Age: 70 Year
  Sex: Female

DRUGS (7)
  1. DAPAGLIFLOZIN [Suspect]
     Active Substance: DAPAGLIFLOZIN
     Indication: Type 2 diabetes mellitus
     Route: 065
  2. DAPAGLIFLOZIN [Suspect]
     Active Substance: DAPAGLIFLOZIN
     Indication: Coronary artery bypass
     Dosage: 10 MILLIGRAM, ONCE A DAY
     Route: 048
  3. METFORMIN [Suspect]
     Active Substance: METFORMIN HYDROCHLORIDE
     Indication: Diabetes mellitus
     Dosage: 500 MILLIGRAM, TWO TIMES A DAY
     Route: 048
  4. METFORMIN [Suspect]
     Active Substance: METFORMIN HYDROCHLORIDE
     Dosage: 1 GRAM, TWO TIMES A DAY
     Route: 048
  5. DULAGLUTIDE [Suspect]
     Active Substance: DULAGLUTIDE
     Indication: Type 2 diabetes mellitus
     Dosage: 1.5 MILLIGRAM, EVERY WEEK
     Route: 058
  6. DULAGLUTIDE [Suspect]
     Active Substance: DULAGLUTIDE
     Indication: Coronary artery bypass
  7. AMIODARONE [Concomitant]
     Active Substance: AMIODARONE
     Indication: Atrial fibrillation
     Route: 065

REACTIONS (4)
  - Euglycaemic diabetic ketoacidosis [Recovered/Resolved]
  - Nausea [Unknown]
  - Metabolic acidosis [Unknown]
  - Vomiting [Unknown]
